FAERS Safety Report 25723108 (Version 1)
Quarter: 2025Q3

REPORT INFORMATION
  Report Type: Spontaneous
  Country: CN (occurrence: CN)
  Receive Date: 20250825
  Receipt Date: 20250825
  Transmission Date: 20251021
  Serious: Yes (Other)
  Sender: PFIZER
  Company Number: CN-PFIZER INC-PV202500101707

PATIENT
  Age: 78 Year
  Sex: Male

DRUGS (2)
  1. TYGACIL [Suspect]
     Active Substance: TIGECYCLINE
     Indication: Chronic obstructive pulmonary disease
     Dosage: 100 MG, 2X/DAY
     Route: 041
     Dates: start: 20250728, end: 20250804
  2. TYGACIL [Suspect]
     Active Substance: TIGECYCLINE
     Indication: Infection

REACTIONS (5)
  - Renal failure [Recovering/Resolving]
  - Decreased appetite [Recovering/Resolving]
  - Frequent bowel movements [Recovering/Resolving]
  - Diarrhoea [Recovering/Resolving]
  - Hypotension [Recovering/Resolving]

NARRATIVE: CASE EVENT DATE: 20250804
